FAERS Safety Report 7548578-3 (Version None)
Quarter: 2011Q2

REPORT INFORMATION
  Report Type: 
  Country: None (occurrence: None)
  Receive Date: 20110615
  Receipt Date: 20110606
  Transmission Date: 20111010
  Serious: Yes (Death, Other)
  Sender: FDA-Public Use
  Company Number: MX-SANOFI-AVENTIS-2011SA035742

PATIENT
  Age: 87 Year
  Sex: Male

DRUGS (3)
  1. LANTUS [Suspect]
     Indication: TYPE 2 DIABETES MELLITUS
     Route: 058
     Dates: start: 20100801, end: 20110115
  2. ALL OTHER THERAPEUTIC PRODUCTS [Concomitant]
     Indication: TYPE 2 DIABETES MELLITUS
     Route: 065
     Dates: end: 20100801
  3. ALL OTHER THERAPEUTIC PRODUCTS [Concomitant]
     Indication: HYPERTENSION
     Route: 048
     Dates: end: 20110115

REACTIONS (4)
  - ACUTE MYOCARDIAL INFARCTION [None]
  - CHEST PAIN [None]
  - HYPERHIDROSIS [None]
  - MALAISE [None]
